FAERS Safety Report 18972676 (Version 1)
Quarter: 2021Q1

REPORT INFORMATION
  Report Type: Spontaneous
  Country: ES (occurrence: ES)
  Receive Date: 20210305
  Receipt Date: 20210305
  Transmission Date: 20210420
  Serious: Yes (Other)
  Sender: FDA-Public Use
  Company Number: ES-ACCORD-218518

PATIENT
  Age: 79 Year
  Sex: Male

DRUGS (10)
  1. FERROUS SULFATE. [Concomitant]
     Active Substance: FERROUS SULFATE
     Indication: PERNICIOUS ANAEMIA
     Dosage: 30 TABLETS
     Route: 048
     Dates: start: 20201126
  2. LORMETAZEPAM NORMON [Concomitant]
     Active Substance: LORMETAZEPAM
     Indication: RECTAL CANCER
     Dosage: 20 TABLETS
     Route: 048
     Dates: start: 20201104
  3. AMLODIPINE STADA [Concomitant]
     Indication: HYPERTENSION
     Dosage: 30 TABLETS
     Route: 048
     Dates: start: 20201021
  4. NOVORAPID [Concomitant]
     Active Substance: INSULIN ASPART
     Indication: TYPE 1 DIABETES MELLITUS
     Dosage: 100 U/ML, 5 PRE?FILLED PENS OF 3 ML
     Route: 058
     Dates: start: 20200725
  5. TORASEMIDE CINFA [Concomitant]
     Indication: CARDIAC FAILURE
     Dosage: 30 TABLETS
     Route: 048
     Dates: start: 20090715
  6. OPTOVITE B12 [Concomitant]
     Active Substance: CYANOCOBALAMIN
     Indication: VITAMIN B COMPLEX DEFICIENCY
     Dosage: 5 AMPOULES OF 2 ML
     Route: 030
     Dates: start: 20200725
  7. SERTRALINE [Suspect]
     Active Substance: SERTRALINE HYDROCHLORIDE
     Indication: DEPRESSION
     Route: 048
     Dates: start: 20201201, end: 20210113
  8. IRBESARTAN ALTER [Concomitant]
     Indication: HYPERTENSION
     Dosage: 28 TABLETS
     Route: 048
     Dates: start: 20120419
  9. TRESIBA [Concomitant]
     Active Substance: INSULIN DEGLUDEC
     Indication: TYPE 1 DIABETES MELLITUS
     Dosage: 100 UNITS/ML, 5 PRE?FILLED PENS?OF 3 ML
     Route: 058
     Dates: start: 20161104
  10. ATORVASTATIN STADA [Concomitant]
     Active Substance: ATORVASTATIN
     Indication: TYPE IIA HYPERLIPIDAEMIA
     Dosage: 28 TABLETS
     Route: 048
     Dates: start: 20161103

REACTIONS (2)
  - Dizziness [Recovering/Resolving]
  - Balance disorder [Recovering/Resolving]

NARRATIVE: CASE EVENT DATE: 20201214
